FAERS Safety Report 19376518 (Version 1)
Quarter: 2021Q2

REPORT INFORMATION
  Report Type: Spontaneous
  Country: US (occurrence: US)
  Receive Date: 20210604
  Receipt Date: 20210604
  Transmission Date: 20210717
  Serious: Yes (Hospitalization)
  Sender: FDA-Public Use
  Company Number: US-MYLANLABS-2021M1032341

PATIENT
  Age: 46 Year
  Sex: Male

DRUGS (2)
  1. ACETAMINOPHEN. [Suspect]
     Active Substance: ACETAMINOPHEN
     Indication: PRODUCT USED FOR UNKNOWN INDICATION
     Dosage: UNK
     Route: 048
  2. FOMEPIZOLE. [Suspect]
     Active Substance: FOMEPIZOLE
     Indication: LIVER INJURY
     Dosage: SINGLE DOSE OF 15 MG/KG INFUSION
     Route: 042

REACTIONS (5)
  - Overdose [Recovering/Resolving]
  - Multiple organ dysfunction syndrome [Recovering/Resolving]
  - Off label use [Unknown]
  - Liver injury [Recovering/Resolving]
  - Hypotension [Recovering/Resolving]
